FAERS Safety Report 8875943 (Version 1)
Quarter: 2012Q4

REPORT INFORMATION
  Report Type: 
  Country: CN (occurrence: CN)
  Receive Date: 20121023
  Receipt Date: 20121023
  Transmission Date: 20130627
  Serious: Yes (Life-Threatening)
  Sender: FDA-Public Use
  Company Number: CN-GLAXOSMITHKLINE-B0839409A

PATIENT
  Age: 62 Year
  Sex: Male

DRUGS (1)
  1. BACTROBAN [Suspect]
     Indication: MOUTH ULCERATION
     Route: 061
     Dates: start: 200906

REACTIONS (1)
  - Leukaemia [Not Recovered/Not Resolved]
